FAERS Safety Report 16231408 (Version 2)
Quarter: 2019Q2

REPORT INFORMATION
  Report Type: Report from Study
  Country: None (occurrence: US)
  Receive Date: 20190424
  Receipt Date: 20190626
  Transmission Date: 20190711
  Serious: Yes (Other)
  Sender: FDA-Public Use
  Company Number: US-ABBVIE-19K-163-2751777-00

PATIENT
  Age: 52 Year
  Sex: Male
  Weight: 85.81 kg

DRUGS (1)
  1. HUMIRA [Suspect]
     Active Substance: ADALIMUMAB
     Indication: ANKYLOSING SPONDYLITIS
     Route: 058
     Dates: start: 2006

REACTIONS (6)
  - Tendon rupture [Recovered/Resolved]
  - Pain in extremity [Recovered/Resolved]
  - Hypertension [Recovering/Resolving]
  - Myalgia [Unknown]
  - Tendon rupture [Recovering/Resolving]
  - Arthralgia [Recovered/Resolved]

NARRATIVE: CASE EVENT DATE: 201707
